FAERS Safety Report 4676710-8 (Version None)
Quarter: 2005Q2

REPORT INFORMATION
  Report Type: 
  Country: None (occurrence: None)
  Receive Date: 20050527
  Receipt Date: 20050408
  Transmission Date: 20051028
  Serious: Yes (Other)
  Sender: FDA-Public Use
  Company Number: US-JNJFOC-20050506678

PATIENT
  Sex: Female
  Weight: 68.04 kg

DRUGS (5)
  1. TYLENOL [Suspect]
     Route: 049
  2. TYLENOL [Suspect]
     Indication: BACK PAIN
     Route: 049
  3. ARTHROTEC [Concomitant]
  4. ARTHROTEC [Concomitant]
  5. UNSPECIFIED YEAST MEDICATION [Concomitant]

REACTIONS (8)
  - ASTHENIA [None]
  - DIARRHOEA [None]
  - EYE SWELLING [None]
  - GENERALISED ERYTHEMA [None]
  - HEADACHE [None]
  - PRURITUS [None]
  - REACTION TO COLOURING [None]
  - SKIN BURNING SENSATION [None]
